FAERS Safety Report 20765241 (Version 1)
Quarter: 2022Q2

REPORT INFORMATION
  Report Type: Spontaneous
  Country: CN (occurrence: CN)
  Receive Date: 20220428
  Receipt Date: 20220428
  Transmission Date: 20220720
  Serious: Yes (Other)
  Sender: FDA-Public Use
  Company Number: CN-BAXTER-2022BAX009101

PATIENT
  Age: 59 Year
  Sex: Female
  Weight: 68 kg

DRUGS (4)
  1. CYCLOPHOSPHAMIDE [Suspect]
     Active Substance: CYCLOPHOSPHAMIDE
     Indication: Breast cancer female
     Dosage: 0.9%NS 50ML + CYCLOPHOSPHAMIDE INJECTION 1G
     Route: 041
     Dates: start: 20220414, end: 20220414
  2. SODIUM CHLORIDE [Suspect]
     Active Substance: SODIUM CHLORIDE
     Indication: Medication dilution
     Dosage: 0.9%NS 50ML + CYCLOPHOSPHAMIDE INJECTION 1G
     Route: 041
     Dates: start: 20220414, end: 20220414
  3. STERILE WATER FOR INJECTION [Suspect]
     Active Substance: WATER
     Indication: Medication dilution
     Dosage: STERILE WATER FOR INJECTION 40ML + EPIRUBICIN INJECTION 70MG
     Route: 041
     Dates: start: 20220414, end: 20220415
  4. EPIRUBICIN HYDROCHLORIDE [Suspect]
     Active Substance: EPIRUBICIN HYDROCHLORIDE
     Indication: Breast cancer female
     Dosage: STERILE WATER FOR INJECTION 40ML + EPIRUBICIN INJECTION 70MG
     Route: 041
     Dates: start: 20220414, end: 20220415

REACTIONS (1)
  - Myelosuppression [Recovered/Resolved]

NARRATIVE: CASE EVENT DATE: 20220419
